FAERS Safety Report 6512286-8 (Version None)
Quarter: 2009Q4

REPORT INFORMATION
  Report Type: 
  Country: None (occurrence: None)
  Receive Date: 20091222
  Receipt Date: 20090713
  Transmission Date: 20100525
  Serious: No
  Sender: FDA-Public Use
  Company Number: US-ASTRAZENECA-2009UW19624

PATIENT
  Age: 79 Year
  Sex: Male
  Weight: 99.3 kg

DRUGS (6)
  1. CRESTOR [Suspect]
     Route: 048
  2. PLAVIX [Concomitant]
  3. VERAPAMIL [Concomitant]
  4. DIGOXIN [Concomitant]
  5. TOPROL-XL [Concomitant]
  6. ENTERIC ASA [Concomitant]

REACTIONS (2)
  - ARTHRALGIA [None]
  - GROIN PAIN [None]
